FAERS Safety Report 8149893-5 (Version None)
Quarter: 2012Q1

REPORT INFORMATION
  Report Type: 
  Country: None (occurrence: None)
  Receive Date: 20120218
  Receipt Date: 20120102
  Transmission Date: 20120608
  Serious: No
  Sender: FDA-Public Use
  Company Number: US-ALLERGAN-1116401US

PATIENT
  Age: 34 Year
  Sex: Female

DRUGS (2)
  1. BOTOX COSMETIC [Suspect]
     Dosage: 40 UNITS, SINGLE
     Route: 030
     Dates: start: 20110830, end: 20110830
  2. BOTOX COSMETIC [Suspect]
     Indication: SKIN WRINKLING
     Dosage: 34 UNITS, SINGLE
     Route: 030
     Dates: start: 20111109, end: 20111109

REACTIONS (3)
  - URTICARIA [None]
  - THROAT TIGHTNESS [None]
  - DYSPHAGIA [None]
